FAERS Safety Report 8585595-9 (Version None)
Quarter: 2012Q3

REPORT INFORMATION
  Report Type: 
  Country: None (occurrence: None)
  Receive Date: 20120810
  Receipt Date: 20120802
  Transmission Date: 20120928
  Serious: Yes (Hospitalization)
  Sender: FDA-Public Use
  Company Number: US-BAYER-200918859NA

PATIENT
  Age: 42 Year
  Sex: Female
  Weight: 78.182 kg

DRUGS (7)
  1. WELLBUTRIN [Concomitant]
  2. HUMIRA [Concomitant]
  3. YAZ [Suspect]
     Dosage: UNK
     Route: 048
     Dates: start: 20081201, end: 20100901
  4. DROSPIRENONE AND ETHINYL ESTRADIOL [Suspect]
     Dosage: UNK
     Dates: start: 20081201, end: 20100901
  5. YASMIN [Suspect]
     Dosage: UNK
     Dates: start: 20081201, end: 20100901
  6. METFORMIN HYDROCHLORIDE [Concomitant]
  7. IMMUNOSUPPRESSIVE AGENTS [Concomitant]
     Indication: PSORIASIS

REACTIONS (3)
  - DEEP VEIN THROMBOSIS [None]
  - ALOPECIA [None]
  - VAGINAL HAEMORRHAGE [None]
